FAERS Safety Report 8134323-X (Version None)
Quarter: 2012Q1

REPORT INFORMATION
  Report Type: 
  Country: None (occurrence: None)
  Receive Date: 20120210
  Receipt Date: 20120131
  Transmission Date: 20120608
  Serious: Yes (Hospitalization)
  Sender: FDA-Public Use
  Company Number: SAN_00034_2012

PATIENT
  Age: 74 Year
  Sex: Male

DRUGS (1)
  1. METFORMIN HCL [Suspect]
     Indication: PRODUCT USED FOR UNKNOWN INDICATION
     Dosage: (850 MG TID, 850 MG)

REACTIONS (14)
  - LACTIC ACIDOSIS [None]
  - ANAEMIA [None]
  - GASTRITIS [None]
  - PNEUMONIA ASPIRATION [None]
  - METABOLIC ACIDOSIS [None]
  - HAEMODYNAMIC INSTABILITY [None]
  - OVERDOSE [None]
  - SHOCK [None]
  - RENAL IMPAIRMENT [None]
  - CONTINUOUS HAEMODIAFILTRATION [None]
  - CARDIAC FAILURE CONGESTIVE [None]
  - LIVER DISORDER [None]
  - HAEMATEMESIS [None]
  - ATRIAL FIBRILLATION [None]
